FAERS Safety Report 7705901-4 (Version None)
Quarter: 2011Q3

REPORT INFORMATION
  Report Type: 
  Country: None (occurrence: None)
  Receive Date: 20110824
  Receipt Date: 20110810
  Transmission Date: 20111222
  Serious: Yes (Hospitalization, Other)
  Sender: FDA-Public Use
  Company Number: ES-ELI_LILLY_AND_COMPANY-ES201108003567

PATIENT
  Sex: Female
  Weight: 56 kg

DRUGS (6)
  1. FORTEO [Suspect]
     Dosage: 20 UG, QD
     Route: 058
     Dates: start: 20110809
  2. DUPHALAC [Concomitant]
     Indication: CONSTIPATION
     Dosage: 2 DF, QD
     Route: 048
  3. FORTEO [Suspect]
     Indication: OSTEOPOROSIS
     Dosage: 20 UG, QD
     Route: 058
     Dates: start: 20091219, end: 20110617
  4. ACETAMINOPHEN [Concomitant]
     Indication: ANALGESIC THERAPY
     Dosage: 1 G, QD
     Route: 048
  5. DIAZEPAM [Concomitant]
     Indication: INSOMNIA
     Dosage: 5 MG, QD
     Route: 048
  6. RISPERIDONE [Concomitant]
     Indication: AGITATION
     Dosage: UNK, BID
     Route: 047

REACTIONS (3)
  - CEREBROVASCULAR ACCIDENT [None]
  - INTESTINAL OBSTRUCTION [None]
  - EMBOLISM [None]
